FAERS Safety Report 21653482 (Version 1)
Quarter: 2022Q4

REPORT INFORMATION
  Report Type: Spontaneous
  Country: US (occurrence: None)
  Receive Date: 20221128
  Receipt Date: 20221128
  Transmission Date: 20230113
  Serious: No
  Sender: FDA-Public Use
  Company Number: 2022A374729

PATIENT
  Sex: Female
  Weight: 92.1 kg

DRUGS (1)
  1. BUDESONIDE\FORMOTEROL FUMARATE DIHYDRATE [Suspect]
     Active Substance: BUDESONIDE\FORMOTEROL FUMARATE DIHYDRATE
     Indication: Asthma
     Route: 055
     Dates: start: 202209

REACTIONS (6)
  - Dyspnoea [Unknown]
  - Illness [Unknown]
  - Off label use [Unknown]
  - Device use issue [Unknown]
  - Product dose omission issue [Unknown]
  - Insurance issue [Unknown]
